FAERS Safety Report 7931080-4 (Version None)
Quarter: 2011Q4

REPORT INFORMATION
  Report Type: 
  Country: None (occurrence: None)
  Receive Date: 20111121
  Receipt Date: 20111117
  Transmission Date: 20120403
  Serious: Yes (Hospitalization)
  Sender: FDA-Public Use
  Company Number: GB-COVIDIEN/TYCO HEALTHCARE/MALLINCKRODT-T201102652

PATIENT
  Sex: Female

DRUGS (1)
  1. OPTIRAY 160 [Suspect]
     Indication: PRODUCT USED FOR UNKNOWN INDICATION
     Dosage: 96 ML, SINGLE
     Route: 042
     Dates: start: 20111114, end: 20111114

REACTIONS (4)
  - ERYTHEMA [None]
  - OROPHARYNGEAL PAIN [None]
  - LIP SWELLING [None]
  - ANAPHYLACTOID REACTION [None]
